FAERS Safety Report 4818021-3 (Version None)
Quarter: 2005Q4

REPORT INFORMATION
  Report Type: 
  Country: None (occurrence: None)
  Receive Date: 20051102
  Receipt Date: 20050916
  Transmission Date: 20060501
  Serious: Yes (Hospitalization)
  Sender: FDA-Public Use
  Company Number: HQWYE544420SEP05

PATIENT
  Sex: Male

DRUGS (7)
  1. ENBREL [Suspect]
     Indication: RHEUMATOID ARTHRITIS
     Route: 058
     Dates: start: 20050629, end: 20050902
  2. PREDNISOLONE [Concomitant]
     Dates: start: 20050727
  3. PREDNISOLONE [Concomitant]
     Dates: start: 20050228
  4. LOXONIN [Concomitant]
     Dates: start: 20020101
  5. MUCOSTA [Concomitant]
     Dates: start: 20050701
  6. ALFAROL [Concomitant]
  7. GASTER [Concomitant]
     Dates: start: 20020101

REACTIONS (2)
  - PLEURISY [None]
  - PNEUMONIA [None]
